FAERS Safety Report 15140971 (Version 1)
Quarter: 2018Q3

REPORT INFORMATION
  Report Type: Spontaneous
  Country: US (occurrence: US)
  Receive Date: 20180618
  Receipt Date: 20180618
  Transmission Date: 20181010
  Serious: Yes (Life-Threatening, Hospitalization, Other)
  Sender: FDA-Public Use
  Company Number: None

PATIENT
  Age: 81 Year
  Sex: Male
  Weight: 90 kg

DRUGS (1)
  1. PROPOFOL. [Suspect]
     Active Substance: PROPOFOL
     Indication: SEDATION
     Route: 040
     Dates: start: 20180322, end: 20180322

REACTIONS (4)
  - Pulse absent [None]
  - Hypotension [None]
  - Cardiac arrest [None]
  - Bradycardia [None]

NARRATIVE: CASE EVENT DATE: 20180322
